FAERS Safety Report 15728552 (Version 2)
Quarter: 2019Q1

REPORT INFORMATION
  Report Type: Report from Study
  Country: None (occurrence: CA)
  Receive Date: 20181217
  Receipt Date: 20190122
  Transmission Date: 20190417
  Serious: Yes (Hospitalization, Other)
  Sender: FDA-Public Use
  Company Number: CA-ABBVIE-18K-028-2580006-00

PATIENT
  Age: 36 Year
  Sex: Female

DRUGS (1)
  1. HUMIRA [Suspect]
     Active Substance: ADALIMUMAB
     Indication: ANKYLOSING SPONDYLITIS
     Route: 058
     Dates: start: 20181114

REACTIONS (14)
  - Sensory loss [Unknown]
  - Hypoaesthesia [Recovering/Resolving]
  - Blood pressure increased [Recovered/Resolved]
  - Paraesthesia [Recovering/Resolving]
  - Sleep disorder [Unknown]
  - Ear discomfort [Recovered/Resolved]
  - Anaphylactoid reaction [Unknown]
  - Respiration abnormal [Unknown]
  - Anxiety [Recovered/Resolved]
  - Hypersensitivity [Recovering/Resolving]
  - Polyneuropathy [Not Recovered/Not Resolved]
  - Musculoskeletal disorder [Unknown]
  - Swollen tongue [Recovering/Resolving]
  - Chest discomfort [Not Recovered/Not Resolved]

NARRATIVE: CASE EVENT DATE: 201811
